FAERS Safety Report 9056598 (Version 2)
Quarter: 2013Q1

REPORT INFORMATION
  Report Type: Spontaneous
  Country: IT (occurrence: IT)
  Receive Date: 20130204
  Receipt Date: 20130227
  Transmission Date: 20140127
  Serious: Yes (Hospitalization)
  Sender: FDA-Public Use
  Company Number: CHPA2013IT002233

PATIENT
  Age: 18 None
  Sex: Female

DRUGS (3)
  1. NEOCIBALENA [Suspect]
     Indication: INTENTIONAL SELF-INJURY
     Dosage: 6 DF, DAILY
     Route: 048
     Dates: start: 20130127, end: 20130127
  2. BUSCOPAN [Suspect]
     Indication: INTENTIONAL SELF-INJURY
     Dosage: 100 MG, DAILY
     Route: 048
     Dates: start: 20130127, end: 20130127
  3. ALCOHOL [Suspect]

REACTIONS (2)
  - Intentional self-injury [Recovering/Resolving]
  - Full blood count abnormal [Recovering/Resolving]
